FAERS Safety Report 7329536-0 (Version None)
Quarter: 2011Q1

REPORT INFORMATION
  Report Type: 
  Country: None (occurrence: None)
  Receive Date: 20110303
  Receipt Date: 20110225
  Transmission Date: 20110831
  Serious: Yes (Hospitalization, Other)
  Sender: FDA-Public Use
  Company Number: US-PFIZER INC-2011043264

PATIENT
  Sex: Female

DRUGS (3)
  1. CHANTIX [Suspect]
     Dosage: UNK
     Dates: start: 20080111
  2. CHANTIX [Suspect]
     Dosage: UNK
     Dates: start: 20090113
  3. CHANTIX [Suspect]
     Dosage: UNK
     Dates: start: 20080606

REACTIONS (6)
  - INTENTIONAL OVERDOSE [None]
  - MANIA [None]
  - PARANOIA [None]
  - ANXIETY [None]
  - SUICIDE ATTEMPT [None]
  - DEPRESSION [None]
